FAERS Safety Report 4479214-0 (Version None)
Quarter: 2004Q4

REPORT INFORMATION
  Report Type: 
  Country: None (occurrence: None)
  Receive Date: 20041020
  Receipt Date: 20041011
  Transmission Date: 20050328
  Serious: Yes (Disabling, Other)
  Sender: FDA-Public Use
  Company Number: NSADSS2003015193

PATIENT
  Sex: Male

DRUGS (1)
  1. REMICADE [Suspect]
     Dosage: HAS REC'D APPROXIMATELY 4 INFUSIONS.
     Route: 041

REACTIONS (4)
  - DEMYELINATING POLYNEUROPATHY [None]
  - DEMYELINATION [None]
  - PANNICULITIS [None]
  - SYSTEMIC LUPUS ERYTHEMATOSUS [None]
